FAERS Safety Report 9743160 (Version 1)
Quarter: 2013Q4

REPORT INFORMATION
  Report Type: Spontaneous
  Country: US (occurrence: US)
  Receive Date: 20131210
  Receipt Date: 20131210
  Transmission Date: 20140711
  Serious: No
  Sender: FDA-Public Use
  Company Number: US-GILEAD-2009-0024421

PATIENT
  Sex: Female
  Weight: 88.45 kg

DRUGS (8)
  1. LETAIRIS [Suspect]
     Indication: PULMONARY ARTERIAL HYPERTENSION
     Route: 048
     Dates: start: 20071031
  2. REVATIO [Concomitant]
  3. NEURONTIN [Concomitant]
  4. COUMADIN [Concomitant]
  5. DARVOCET-N [Concomitant]
  6. ATIVAN [Concomitant]
  7. LASIX [Concomitant]
  8. OXYGEN [Concomitant]

REACTIONS (3)
  - Respiratory tract congestion [Unknown]
  - Dysgeusia [Unknown]
  - Infection [Unknown]
